FAERS Safety Report 25062268 (Version 1)
Quarter: 2025Q1

REPORT INFORMATION
  Report Type: Spontaneous
  Country: US (occurrence: US)
  Receive Date: 20250311
  Receipt Date: 20250311
  Transmission Date: 20250408
  Serious: Yes (Other)
  Sender: INTRA-CELLULAR THERAPIES
  Company Number: US-INTRA-CELLULAR THERAPIES, INC.-2025ICT00317

PATIENT
  Sex: Male

DRUGS (4)
  1. CAPLYTA [Suspect]
     Active Substance: LUMATEPERONE
     Indication: Bipolar I disorder
  2. CAPLYTA [Suspect]
     Active Substance: LUMATEPERONE
     Indication: Bipolar disorder
  3. LAMICTAL [Suspect]
     Active Substance: LAMOTRIGINE
     Indication: Bipolar I disorder
  4. LAMICTAL [Suspect]
     Active Substance: LAMOTRIGINE

REACTIONS (2)
  - Erectile dysfunction [Unknown]
  - Libido decreased [Unknown]
